FAERS Safety Report 7045551-9 (Version None)
Quarter: 2010Q4

REPORT INFORMATION
  Report Type: 
  Country: None (occurrence: None)
  Receive Date: 20101014
  Receipt Date: 20101007
  Transmission Date: 20110411
  Serious: Yes (Hospitalization)
  Sender: FDA-Public Use
  Company Number: US-ABBOTT-10P-163-0677185-00

PATIENT
  Sex: Male
  Weight: 47.67 kg

DRUGS (6)
  1. HUMIRA [Suspect]
     Indication: CROHN'S DISEASE
     Route: 058
     Dates: start: 20100710, end: 20100916
  2. HUMIRA [Suspect]
     Route: 058
     Dates: start: 20100916, end: 20100927
  3. HUMIRA [Suspect]
     Dates: start: 20101009
  4. APRISO [Concomitant]
     Indication: CROHN'S DISEASE
     Dosage: EVERY MORNING
     Dates: start: 20100901
  5. GENOTROPIN [Concomitant]
     Indication: BLOOD GROWTH HORMONE
     Dates: start: 20100101
  6. PEPCID [Concomitant]
     Indication: ABDOMINAL PAIN

REACTIONS (5)
  - ABDOMINAL PAIN [None]
  - CLOSTRIDIUM DIFFICILE COLITIS [None]
  - CROHN'S DISEASE [None]
  - DIARRHOEA [None]
  - PYREXIA [None]
